FAERS Safety Report 6344492-X (Version None)
Quarter: 2009Q3

REPORT INFORMATION
  Report Type: 
  Country: None (occurrence: None)
  Receive Date: 20090908
  Receipt Date: 20090825
  Transmission Date: 20100115
  Serious: Yes (Death, Other)
  Sender: FDA-Public Use
  Company Number: PE-PFIZER INC-2009260501

PATIENT
  Age: 101 Year

DRUGS (4)
  1. XALATAN [Suspect]
     Indication: GLAUCOMA
     Route: 047
     Dates: start: 20051030, end: 20090801
  2. CAPTOPRIL [Concomitant]
     Indication: HYPERTENSION
     Dosage: UNK
     Dates: end: 20090801
  3. AMLODIPINE [Concomitant]
     Indication: HYPERTENSION
     Dosage: UNK
     Dates: end: 20090801
  4. ACETYLSALICYLIC ACID [Concomitant]
     Dosage: UNK
     Dates: end: 20090801

REACTIONS (2)
  - DEATH [None]
  - PNEUMONIA [None]
